FAERS Safety Report 18373180 (Version 2)
Quarter: 2020Q4

REPORT INFORMATION
  Report Type: Spontaneous
  Country: US (occurrence: US)
  Receive Date: 20201012
  Receipt Date: 20201015
  Transmission Date: 20210114
  Serious: Yes (Other)
  Sender: FDA-Public Use
  Company Number: US-PFIZER INC-2020386510

PATIENT
  Age: 23 Year
  Sex: Male

DRUGS (10)
  1. FENTANYL CITRATE. [Suspect]
     Active Substance: FENTANYL CITRATE
     Indication: ANAESTHESIA
  2. LIDOCAINE HCL [Suspect]
     Active Substance: LIDOCAINE HYDROCHLORIDE
     Indication: ANAESTHESIA
  3. PROPOFOL. [Suspect]
     Active Substance: PROPOFOL
     Indication: KERATOPLASTY
     Dosage: 150 MG
  4. PROPOFOL. [Suspect]
     Active Substance: PROPOFOL
     Indication: ANAESTHESIA
  5. FENTANYL CITRATE. [Suspect]
     Active Substance: FENTANYL CITRATE
     Indication: KERATOPLASTY
     Dosage: 25 UG
  6. EPINEPHRINE. [Suspect]
     Active Substance: EPINEPHRINE
     Indication: KERATOPLASTY
     Dosage: 1 MG
  7. MIDAZOLAM. [Suspect]
     Active Substance: MIDAZOLAM
     Indication: ANAESTHESIA
  8. LIDOCAINE HCL [Suspect]
     Active Substance: LIDOCAINE HYDROCHLORIDE
     Indication: KERATOPLASTY
     Dosage: 100 MG
  9. EPINEPHRINE. [Suspect]
     Active Substance: EPINEPHRINE
     Indication: ANAESTHESIA
  10. MIDAZOLAM. [Suspect]
     Active Substance: MIDAZOLAM
     Indication: KERATOPLASTY
     Dosage: 2 MG (PRE-RETREATED)

REACTIONS (5)
  - Blood glucose increased [Unknown]
  - Hypertension [Unknown]
  - Bradycardia [Recovered/Resolved]
  - Blood creatinine increased [Unknown]
  - Electrolyte imbalance [Unknown]
